FAERS Safety Report 7684663-3 (Version None)
Quarter: 2011Q3

REPORT INFORMATION
  Report Type: 
  Country: None (occurrence: None)
  Receive Date: 20110816
  Receipt Date: 20110810
  Transmission Date: 20111222
  Serious: Yes (Other)
  Sender: FDA-Public Use
  Company Number: GB-BRISTOL-MYERS SQUIBB COMPANY-15965353

PATIENT
  Sex: Female

DRUGS (1)
  1. MEGACE [Suspect]
     Indication: OVARIAN CANCER

REACTIONS (1)
  - JAUNDICE [None]
